FAERS Safety Report 9157935 (Version 1)
Quarter: 2013Q1

REPORT INFORMATION
  Report Type: Spontaneous
  Country: US (occurrence: None)
  Receive Date: 20130204
  Receipt Date: 20130204
  Transmission Date: 20140127
  Serious: Yes (Hospitalization)
  Sender: FDA-Public Use
  Company Number: UTC-028468

PATIENT
  Age: 58 Year
  Sex: Male

DRUGS (3)
  1. TYVASO [Suspect]
     Indication: PRODUCT USED FOR UNKNOWN INDICATION
     Dosage: INHALATION
  2. LETAIRIS (AMBRISEN-TAN) (TABLET) [Concomitant]
     Indication: PULMONARY HYPERTENSION
  3. COUMADIN (WARFARIN SODIUM) [Concomitant]

REACTIONS (3)
  - Thrombosis [None]
  - Gastrointestinal haemorrhage [None]
  - Dyspnoea [None]
